FAERS Safety Report 9748267 (Version 1)
Quarter: 2013Q4

REPORT INFORMATION
  Report Type: Spontaneous
  Country: CH (occurrence: None)
  Receive Date: 20131209
  Receipt Date: 20131209
  Transmission Date: 20140711
  Serious: Yes (Hospitalization)
  Sender: FDA-Public Use
  Company Number: 2013342752

PATIENT
  Age: 37 Year
  Sex: Female

DRUGS (9)
  1. FRAGMIN [Suspect]
     Dates: start: 20130702
  2. DIOVAN [Suspect]
     Indication: ESSENTIAL HYPERTENSION
     Dates: end: 2013
  3. ADALAT CR [Suspect]
     Indication: ESSENTIAL HYPERTENSION
     Dates: start: 2013
  4. TRANDATE [Suspect]
     Indication: HYPERTENSION
     Dates: start: 20130703, end: 20130713
  5. MEPHAMESON [Suspect]
     Dates: start: 20130702, end: 20130703
  6. ELOCOM [Suspect]
     Indication: DERMATITIS ATOPIC
     Dates: start: 20130702, end: 20130713
  7. ALUCOL [Suspect]
     Dosage: 20MG, SINGLE
     Dates: start: 20130709, end: 20130709
  8. HUMULUS LUPULUS EXTRACT/VALERIAN ROOT [Suspect]
     Dosage: 1 DF (500MG/120 MG), SINGLE
     Dates: start: 20130710, end: 20130710
  9. ELEVIT PRONATAL (MINERALS NOS, VITAMINS NOS) [Concomitant]

REACTIONS (6)
  - Blood pressure increased [None]
  - Liver function test abnormal [None]
  - Platelet count decreased [None]
  - Exposure during pregnancy [None]
  - Caesarean section [None]
  - Premature labour [None]
